FAERS Safety Report 12398852 (Version 1)
Quarter: 2016Q2

REPORT INFORMATION
  Report Type: Spontaneous
  Country: TR (occurrence: TR)
  Receive Date: 20160524
  Receipt Date: 20160524
  Transmission Date: 20160815
  Serious: Yes (Hospitalization, Other)
  Sender: FDA-Public Use
  Company Number: TR-UCBSA-2016018858

PATIENT
  Age: 24 Year
  Sex: Female

DRUGS (3)
  1. VALPROIC ACID. [Concomitant]
     Active Substance: VALPROIC ACID
     Indication: SEIZURE
     Dosage: 1000 MG
  2. KEPPRA [Suspect]
     Active Substance: LEVETIRACETAM
     Indication: SEIZURE
     Dosage: UNKNOWN DOSE
  3. KEPPRA [Suspect]
     Active Substance: LEVETIRACETAM
     Dosage: 2000 MG

REACTIONS (6)
  - Drug ineffective [Unknown]
  - Hallucination, auditory [Unknown]
  - Psychotic disorder [Unknown]
  - Self injurious behaviour [Unknown]
  - Off label use [Unknown]
  - Exposure during pregnancy [Unknown]
